FAERS Safety Report 8119899-0 (Version None)
Quarter: 2012Q1

REPORT INFORMATION
  Report Type: 
  Country: None (occurrence: None)
  Receive Date: 20120207
  Receipt Date: 20111117
  Transmission Date: 20120608
  Serious: No
  Sender: FDA-Public Use
  Company Number: CA-JNJFOC-20120110109

PATIENT
  Sex: Female
  Weight: 57.15 kg

DRUGS (4)
  1. REMICADE [Suspect]
     Indication: BEHCET'S SYNDROME
     Route: 042
     Dates: start: 20081101, end: 20111001
  2. PREDNISOLONE [Concomitant]
     Indication: EYE DISORDER
     Route: 065
  3. HOMATROPINE [Concomitant]
     Indication: EYE DISORDER
     Route: 065
  4. DEXAMETHASONE [Concomitant]
     Indication: EYE DISORDER
     Route: 065

REACTIONS (1)
  - HERPES ZOSTER [None]
